FAERS Safety Report 5918105-2 (Version None)
Quarter: 2008Q4

REPORT INFORMATION
  Report Type: 
  Country: None (occurrence: None)
  Receive Date: 20081014
  Receipt Date: 20081002
  Transmission Date: 20090506
  Serious: Yes (Death, Hospitalization)
  Sender: FDA-Public Use
  Company Number: PH-BAXTER-2008BH010535

PATIENT
  Age: 37 Year
  Sex: Male
  Weight: 120 kg

DRUGS (1)
  1. DIANEAL [Suspect]
     Indication: RENAL FAILURE
     Route: 033
     Dates: start: 20040210, end: 20080810

REACTIONS (3)
  - ASTHENIA [None]
  - RENAL FAILURE CHRONIC [None]
  - SEPTIC SHOCK [None]
